FAERS Safety Report 18702310 (Version 1)
Quarter: 2021Q1

REPORT INFORMATION
  Report Type: Spontaneous
  Country: US (occurrence: US)
  Receive Date: 20210105
  Receipt Date: 20210105
  Transmission Date: 20210419
  Serious: No
  Sender: FDA-Public Use
  Company Number: US-PFIZER INC-2020518259

PATIENT
  Age: 98 Year
  Sex: Female

DRUGS (1)
  1. XANAX [Suspect]
     Active Substance: ALPRAZOLAM
     Indication: ANXIETY
     Dosage: 0.25 MG, 3 TIMES A DAY
     Dates: end: 20201223

REACTIONS (3)
  - Withdrawal syndrome [Unknown]
  - Somnolence [Unknown]
  - Dysarthria [Unknown]
